FAERS Safety Report 6950110-X (Version None)
Quarter: 2010Q3

REPORT INFORMATION
  Report Type: 
  Country: None (occurrence: None)
  Receive Date: 20100828
  Receipt Date: 20100128
  Transmission Date: 20110219
  Serious: No
  Sender: FDA-Public Use
  Company Number: US-ABBOTT-09P-163-0616603-00

PATIENT
  Sex: Male
  Weight: 90.8 kg

DRUGS (10)
  1. NIASPAN [Suspect]
     Indication: LIPOPROTEIN (A) INCREASED
     Dosage: DAILY AT HOUR OF SLEEP
     Route: 048
  2. NIASPAN [Suspect]
     Dosage: DAILY AT HOUR OF SLEEP
     Route: 048
  3. NIASPAN [Suspect]
     Dosage: DAILY AT HOUR OF SLEEP
     Route: 048
  4. LIPITOR [Concomitant]
     Indication: BLOOD CHOLESTEROL INCREASED
     Dosage: DAILY
     Route: 048
  5. PLAVIX [Concomitant]
     Indication: ARTERIOSCLEROSIS
     Dosage: DAILY
     Route: 048
  6. LOVAZA [Concomitant]
     Indication: CARDIAC DISORDER
     Dosage: DAILY
     Route: 048
  7. NEXIUM [Concomitant]
     Indication: GASTROOESOPHAGEAL REFLUX DISEASE
  8. EYE DROPS [Concomitant]
     Indication: GLAUCOMA
     Route: 047
  9. ASPIRIN [Concomitant]
     Indication: PRODUCT USED FOR UNKNOWN INDICATION
     Dosage: DAILY
     Route: 048
  10. ZETIA [Concomitant]
     Indication: PRODUCT USED FOR UNKNOWN INDICATION
     Dosage: DAILY
     Route: 048

REACTIONS (1)
  - LIPOPROTEIN (A) INCREASED [None]
